FAERS Safety Report 4742071-9 (Version None)
Quarter: 2005Q3

REPORT INFORMATION
  Report Type: 
  Country: None (occurrence: None)
  Receive Date: 20050810
  Receipt Date: 20050810
  Transmission Date: 20060218
  Serious: Yes (Life-Threatening, Hospitalization)
  Sender: FDA-Public Use
  Company Number: None

PATIENT
  Age: 58 Year
  Sex: Male
  Weight: 108.6 kg

DRUGS (17)
  1. SULFAMETHOXAZOLE AND TRIMETHOPRIM [Suspect]
     Indication: CHRONIC OBSTRUCTIVE PULMONARY DISEASE
     Dosage: SMX 800/TMP 160 PO BID
     Route: 048
     Dates: start: 20050215, end: 20050216
  2. ALBUTEROL/IPRATOP [Concomitant]
  3. GUAIFENESIN [Concomitant]
  4. MONTELUKAST [Concomitant]
  5. ALBUTEROL 3/IPRATROP [Concomitant]
  6. LORAZEPAM [Concomitant]
  7. QUETIPINE FUMARATE [Concomitant]
  8. SERTRALINE HCL [Concomitant]
  9. ENALAPRIL MALEATE [Concomitant]
  10. SIMVASTATIN [Concomitant]
  11. CARVEDILOL [Concomitant]
  12. LANOXIN [Concomitant]
  13. FUROSEMIDE [Concomitant]
  14. GEMFIBROZIL [Concomitant]
  15. FLUNISOLIDE/MENTHOL [Concomitant]
  16. PREDNISONE [Concomitant]
  17. FORMOTEROL [Concomitant]

REACTIONS (2)
  - RESPIRATORY DISTRESS [None]
  - URTICARIA [None]
